FAERS Safety Report 21415417 (Version 1)
Quarter: 2022Q4

REPORT INFORMATION
  Report Type: Spontaneous
  Country: US (occurrence: None)
  Receive Date: 20221005
  Receipt Date: 20221005
  Transmission Date: 20230113
  Serious: Yes (Hospitalization)
  Sender: FDA-Public Use
  Company Number: None

PATIENT
  Sex: Female
  Weight: 72.5 kg

DRUGS (1)
  1. ARIMIDEX [Suspect]
     Active Substance: ANASTROZOLE

REACTIONS (9)
  - Flank pain [None]
  - Nausea [None]
  - Haematuria [None]
  - Atrial fibrillation [None]
  - Hypotension [None]
  - Urinary tract inflammation [None]
  - Bladder hypertrophy [None]
  - Cystitis [None]
  - Malnutrition [None]

NARRATIVE: CASE EVENT DATE: 20220504
